FAERS Safety Report 21973744 (Version 1)
Quarter: 2023Q1

REPORT INFORMATION
  Report Type: Spontaneous
  Country: US (occurrence: US)
  Receive Date: 20230209
  Receipt Date: 20230209
  Transmission Date: 20230418
  Serious: Yes (Death, Other)
  Sender: FDA-Public Use
  Company Number: US-BAUSCH-BL-2023-002089

PATIENT
  Age: 51 Year
  Sex: Female

DRUGS (10)
  1. CHLORDIAZEPOXIDE [Suspect]
     Active Substance: CHLORDIAZEPOXIDE
     Indication: Product used for unknown indication
     Dosage: INGESTION
     Route: 048
  2. CHLORDIAZEPOXIDE [Suspect]
     Active Substance: CHLORDIAZEPOXIDE
     Route: 065
  3. FENTANYL [Suspect]
     Active Substance: FENTANYL
     Indication: Product used for unknown indication
     Dosage: INGESTION; FENTANYL (PRESCRIPTION)
     Route: 048
  4. FENTANYL [Suspect]
     Active Substance: FENTANYL
     Dosage: FENTANYL (PRESCRIPTION)
     Route: 065
  5. COCAINE [Suspect]
     Active Substance: COCAINE
     Indication: Product used for unknown indication
     Dosage: INGESTION
     Route: 048
  6. COCAINE [Suspect]
     Active Substance: COCAINE
     Route: 065
  7. CARBAMAZEPINE [Suspect]
     Active Substance: CARBAMAZEPINE
     Indication: Product used for unknown indication
     Dosage: INGESTION
     Route: 048
  8. CARBAMAZEPINE [Suspect]
     Active Substance: CARBAMAZEPINE
     Route: 065
  9. ALCOHOL [Suspect]
     Active Substance: ALCOHOL
     Indication: Product used for unknown indication
     Dosage: ETHANOL (BEVERAGE); INGESTION
     Route: 048
  10. ALCOHOL [Suspect]
     Active Substance: ALCOHOL
     Dosage: ETHANOL (BEVERAGE)
     Route: 065

REACTIONS (3)
  - Drug abuse [Fatal]
  - Cardiac arrest [Unknown]
  - Respiratory arrest [Unknown]
